FAERS Safety Report 4953799-X (Version None)
Quarter: 2006Q1

REPORT INFORMATION
  Report Type: 
  Country: None (occurrence: None)
  Receive Date: 20060324
  Receipt Date: 20060324
  Transmission Date: 20060701
  Serious: Yes (Hospitalization)
  Sender: FDA-Public Use
  Company Number: None

PATIENT
  Age: 62 Year
  Sex: Female
  Weight: 113.3993 kg

DRUGS (2)
  1. LENALIDOMIDE 5 MG. 25MG CELGENE [Suspect]
     Indication: GLIOBLASTOMA
     Dosage: 40 MG DAILY PO
     Route: 048
     Dates: start: 20051223, end: 20060112
  2. LENALIDOMIDE 5 MG. 25MG CELGENE [Suspect]

REACTIONS (1)
  - PULMONARY EMBOLISM [None]
